FAERS Safety Report 5759339-X (Version None)
Quarter: 2008Q2

REPORT INFORMATION
  Report Type: 
  Country: None (occurrence: None)
  Receive Date: 20080507
  Receipt Date: 20080115
  Transmission Date: 20081010
  Serious: Yes (Other)
  Sender: FDA-Public Use
  Company Number: 230481J08USA

PATIENT
  Sex: Female

DRUGS (1)
  1. REBIF [Suspect]
     Indication: MULTIPLE SCLEROSIS
     Dates: start: 20070101, end: 20070101

REACTIONS (4)
  - ANGER [None]
  - DEPRESSION [None]
  - MOOD SWINGS [None]
  - SELF-INJURIOUS IDEATION [None]
